FAERS Safety Report 7945235-6 (Version None)
Quarter: 2011Q4

REPORT INFORMATION
  Report Type: 
  Country: None (occurrence: None)
  Receive Date: 20111129
  Receipt Date: 20110706
  Transmission Date: 20120403
  Serious: No
  Sender: FDA-Public Use
  Company Number: US-GLAXOSMITHKLINE-A0935133A

PATIENT
  Age: 80 Year
  Sex: Female

DRUGS (5)
  1. CITALOPRAM [Concomitant]
  2. FLOVENT [Suspect]
     Indication: UPPER RESPIRATORY TRACT INFECTION
     Dosage: 1PUFF TWICE PER DAY
     Route: 055
     Dates: start: 20110629
  3. METAMUCIL-2 [Concomitant]
  4. SENOKOT [Concomitant]
  5. UNKNOWN MEDICATION [Concomitant]
     Indication: TREMOR

REACTIONS (3)
  - DYSPNOEA [None]
  - DRUG INEFFECTIVE [None]
  - WHEEZING [None]
